FAERS Safety Report 24307218 (Version 1)
Quarter: 2024Q3

REPORT INFORMATION
  Report Type: Spontaneous
  Country: FR (occurrence: FR)
  Receive Date: 20240911
  Receipt Date: 20240911
  Transmission Date: 20241017
  Serious: Yes (Other)
  Sender: PFIZER
  Company Number: FR-PFIZER INC-202400252640

PATIENT
  Age: 83 Year
  Sex: Male

DRUGS (3)
  1. CLINDAMYCIN [Suspect]
     Active Substance: CLINDAMYCIN
     Indication: Dental operation
     Dosage: 150 MG (2 TABLETS IN THE MORNING AND 2 TABLETS IN THE EVENING FOR 7 DAYS)
  2. BISOPROLOL [Concomitant]
     Active Substance: BISOPROLOL\BISOPROLOL FUMARATE
     Dosage: 5 MG
  3. INDAPAMIDE\PERINDOPRIL ARGININE [Concomitant]
     Active Substance: INDAPAMIDE\PERINDOPRIL ARGININE
     Dosage: UNK

REACTIONS (4)
  - Angina pectoris [Unknown]
  - Gait disturbance [Unknown]
  - Feeling abnormal [Unknown]
  - Off label use [Unknown]
